FAERS Safety Report 12432709 (Version 1)
Quarter: 2016Q2

REPORT INFORMATION
  Report Type: Spontaneous
  Country: US (occurrence: US)
  Receive Date: 20160603
  Receipt Date: 20160603
  Transmission Date: 20160815
  Serious: No
  Sender: FDA-Public Use
  Company Number: US-TEVA-574534USA

PATIENT
  Sex: Female

DRUGS (3)
  1. CETIRIZINE [Suspect]
     Active Substance: CETIRIZINE HYDROCHLORIDE
     Indication: URTICARIA
     Route: 065
  2. NABUMETONE. [Suspect]
     Active Substance: NABUMETONE
     Indication: URTICARIA
     Route: 065
  3. PEPCID [Suspect]
     Active Substance: FAMOTIDINE
     Indication: URTICARIA
     Route: 065

REACTIONS (2)
  - Drug ineffective [Unknown]
  - Product use issue [Unknown]
